FAERS Safety Report 24784598 (Version 1)
Quarter: 2024Q4

REPORT INFORMATION
  Report Type: Spontaneous
  Country: US (occurrence: None)
  Receive Date: 20241226
  Receipt Date: 20241226
  Transmission Date: 20250115
  Serious: Yes (unspecified)
  Sender: Public
  Company Number: None

PATIENT
  Sex: Female

DRUGS (1)
  1. DRONABINOL [Suspect]
     Active Substance: DRONABINOL

REACTIONS (3)
  - Seizure [None]
  - Overdose [None]
  - Mental disorder [None]

NARRATIVE: CASE EVENT DATE: 20241107
